FAERS Safety Report 5764278-4 (Version None)
Quarter: 2008Q2

REPORT INFORMATION
  Report Type: 
  Country: None (occurrence: None)
  Receive Date: 20080604
  Receipt Date: 20080520
  Transmission Date: 20081010
  Serious: Yes (Hospitalization)
  Sender: FDA-Public Use
  Company Number: 2008AL005577

PATIENT
  Age: 85 Year
  Sex: Female
  Weight: 77.1115 kg

DRUGS (1)
  1. DIGOXIN [Suspect]
     Indication: ARRHYTHMIA
     Dosage: PO DAILY
     Route: 048

REACTIONS (3)
  - HEART RATE DECREASED [None]
  - HEART RATE INCREASED [None]
  - THERAPEUTIC AGENT TOXICITY [None]
